FAERS Safety Report 15139434 (Version 1)
Quarter: 2018Q3

REPORT INFORMATION
  Report Type: Spontaneous
  Country: US (occurrence: US)
  Receive Date: 20180713
  Receipt Date: 20180713
  Transmission Date: 20181010
  Serious: No
  Sender: FDA-Public Use
  Company Number: US-JNJFOC-20180625732

PATIENT
  Sex: Female
  Weight: 45.81 kg

DRUGS (11)
  1. PREDNISONE. [Concomitant]
     Active Substance: PREDNISONE
     Indication: BLOOD PRESSURE ABNORMAL
     Route: 065
  2. DEXILANT [Concomitant]
     Active Substance: DEXLANSOPRAZOLE
     Indication: GASTROOESOPHAGEAL REFLUX DISEASE
     Route: 065
  3. TYLENOL [Suspect]
     Active Substance: ACETAMINOPHEN
     Indication: PREMEDICATION
     Route: 065
  4. AVAPRO [Concomitant]
     Active Substance: IRBESARTAN
     Indication: BLOOD PRESSURE ABNORMAL
     Route: 065
  5. REMICADE [Concomitant]
     Active Substance: INFLIXIMAB
     Indication: RHEUMATOID ARTHRITIS
     Route: 042
     Dates: start: 201805
  6. NORCO [Concomitant]
     Active Substance: ACETAMINOPHEN\HYDROCODONE BITARTRATE
     Indication: PAIN
     Route: 065
  7. ZYRTEC [Suspect]
     Active Substance: CETIRIZINE HYDROCHLORIDE
     Route: 065
  8. ZYRTEC [Suspect]
     Active Substance: CETIRIZINE HYDROCHLORIDE
     Indication: PREMEDICATION
     Route: 065
  9. TYLENOL [Suspect]
     Active Substance: ACETAMINOPHEN
     Route: 065
  10. LIPITOR [Concomitant]
     Active Substance: ATORVASTATIN CALCIUM
     Indication: PRODUCT USED FOR UNKNOWN INDICATION
     Route: 065
  11. LIBRAX [Concomitant]
     Active Substance: CHLORDIAZEPOXIDE HYDROCHLORIDE\CLIDINIUM BROMIDE
     Indication: IRRITABLE BOWEL SYNDROME
     Route: 065

REACTIONS (2)
  - Product use in unapproved indication [Unknown]
  - Off label use [Unknown]
